FAERS Safety Report 7532030-5 (Version None)
Quarter: 2011Q2

REPORT INFORMATION
  Report Type: 
  Country: None (occurrence: None)
  Receive Date: 20110608
  Receipt Date: 20110526
  Transmission Date: 20111010
  Serious: Yes (Hospitalization)
  Sender: FDA-Public Use
  Company Number: JP-CELGENEUS-087-50794-11053906

PATIENT
  Age: 75 Year
  Sex: Female

DRUGS (1)
  1. VIDAZA [Suspect]
     Dosage: 75 MILLIGRAM/SQ. METER
     Route: 058
     Dates: start: 20110425, end: 20110427

REACTIONS (3)
  - PYREXIA [None]
  - RENAL DISORDER [None]
  - PLATELET COUNT DECREASED [None]
